FAERS Safety Report 18561236 (Version 6)
Quarter: 2021Q4

REPORT INFORMATION
  Report Type: Report from Study
  Country: US (occurrence: US)
  Receive Date: 20201130
  Receipt Date: 20211029
  Transmission Date: 20220304
  Serious: No
  Sender: FDA-Public Use
  Company Number: NVSC2020US316795

PATIENT
  Sex: Female

DRUGS (3)
  1. ENTRESTO [Suspect]
     Active Substance: SACUBITRIL\VALSARTAN
     Indication: Cardiac failure chronic
     Dosage: UNK
     Route: 065
  2. FUROSEMIDE [Concomitant]
     Active Substance: FUROSEMIDE
     Indication: Product used for unknown indication
     Dosage: UNK
     Route: 065
  3. FUROSEMIDE [Concomitant]
     Active Substance: FUROSEMIDE
     Dosage: UNK, DOUBLED
     Route: 065

REACTIONS (11)
  - Muscle spasms [Unknown]
  - Weight decreased [Unknown]
  - Pain in extremity [Unknown]
  - Dyspnoea [Unknown]
  - Weight increased [Unknown]
  - Eye contusion [Unknown]
  - Confusional state [Unknown]
  - Fall [Unknown]
  - Incorrect dose administered [Unknown]
  - Abdominal discomfort [Unknown]
  - Neuralgia [Unknown]
